FAERS Safety Report 22086225 (Version 1)
Quarter: 2023Q1

REPORT INFORMATION
  Report Type: Spontaneous
  Country: EG (occurrence: EG)
  Receive Date: 20230310
  Receipt Date: 20230310
  Transmission Date: 20230418
  Serious: Yes (Disabling, Other)
  Sender: FDA-Public Use
  Company Number: EG-NOVOPROD-1032817

PATIENT
  Age: 59 Year
  Sex: Female

DRUGS (2)
  1. MIXTARD HUMAN 70/30 [Suspect]
     Active Substance: INSULIN HUMAN
     Dosage: 50 U
  2. MIXTARD HUMAN 70/30 [Suspect]
     Active Substance: INSULIN HUMAN
     Indication: Product used for unknown indication
     Dosage: 80U (50U MORNING AND 30U NIGHT)

REACTIONS (7)
  - Cerebrovascular accident [Unknown]
  - Hemiplegia [Unknown]
  - Cardiac disorder [Unknown]
  - Tooth loss [Unknown]
  - Hepatic cirrhosis [Unknown]
  - Injection site discolouration [Unknown]
  - Injection site mass [Unknown]
